FAERS Safety Report 5004336-5 (Version None)
Quarter: 2006Q2

REPORT INFORMATION
  Report Type: 
  Country: None (occurrence: None)
  Receive Date: 20060517
  Receipt Date: 20060421
  Transmission Date: 20061013
  Serious: Yes (Death)
  Sender: FDA-Public Use
  Company Number: AT-MERCK-0605AUT00010

PATIENT
  Sex: Female

DRUGS (2)
  1. CANCIDAS [Suspect]
     Indication: ASPERGILLOSIS
     Route: 065
  2. VORICONAZOLE [Concomitant]
     Route: 065

REACTIONS (1)
  - DRUG RESISTANCE [None]
